FAERS Safety Report 11221968 (Version 4)
Quarter: 2015Q3

REPORT INFORMATION
  Report Type: Spontaneous
  Country: FR (occurrence: FR)
  Receive Date: 20150626
  Receipt Date: 20150724
  Transmission Date: 20151125
  Serious: Yes (Hospitalization, Other)
  Sender: FDA-Public Use
  Company Number: FR-PFIZER INC-2015209261

PATIENT
  Age: 92 Year
  Sex: Male

DRUGS (16)
  1. CARDENSIEL [Suspect]
     Active Substance: BISOPROLOL FUMARATE
     Indication: CARDIAC FAILURE
     Dosage: 2.5 MG, 1X/DAY
     Route: 048
     Dates: start: 201503, end: 20150426
  2. LASILIX [Suspect]
     Active Substance: FUROSEMIDE
     Dosage: 40 MG, DAILY
     Dates: start: 20150419, end: 20150422
  3. OXAZEPAM. [Concomitant]
     Active Substance: OXAZEPAM
     Dosage: UNK
  4. XATRAL [Concomitant]
     Active Substance: ALFUZOSIN
     Dosage: UNK
  5. COVERSYL [Suspect]
     Active Substance: PERINDOPRIL
     Indication: LEFT VENTRICULAR DYSFUNCTION
  6. LASILIX [Suspect]
     Active Substance: FUROSEMIDE
     Dosage: UNK
     Dates: start: 20150423, end: 20150426
  7. DISCOTRINE [Suspect]
     Active Substance: NITROGLYCERIN
     Dosage: 5 MG, DAILY
     Route: 062
     Dates: start: 201504
  8. ASPEGIC [Concomitant]
     Active Substance: ASPIRIN DL-LYSINE
     Dosage: UNK
     Dates: start: 201503
  9. NITROGLYCERIN. [Suspect]
     Active Substance: NITROGLYCERIN
     Dosage: 5 MG, DAILY (DOSAGES / INTERVAL: 1 IN 1 DAYS)
     Route: 062
     Dates: start: 201504
  10. LASILIX [Suspect]
     Active Substance: FUROSEMIDE
     Dosage: 60 MG, DAILY
     Dates: start: 201502, end: 20150418
  11. SIMVASTATIN. [Concomitant]
     Active Substance: SIMVASTATIN
     Dosage: UNK
  12. ANDROCUR [Concomitant]
     Active Substance: CYPROTERONE ACETATE
     Dosage: UNK
  13. CORDARONE [Suspect]
     Active Substance: AMIODARONE HYDROCHLORIDE
     Indication: LEFT VENTRICULAR DYSFUNCTION
     Dosage: 200 MG, 1X/DAY
     Route: 048
     Dates: start: 201503, end: 20150426
  14. COVERSYL [Suspect]
     Active Substance: PERINDOPRIL
     Indication: CARDIAC FAILURE
     Dosage: 2.5 MG, 1X/DAY
     Route: 048
     Dates: start: 201503, end: 20150426
  15. PANTOPRAZOLE [Concomitant]
     Active Substance: PANTOPRAZOLE SODIUM
     Dosage: UNK
  16. MACROGOL [Concomitant]
     Active Substance: POLYETHYLENE GLYCOLS
     Dosage: UNK

REACTIONS (4)
  - Hypotension [Recovered/Resolved]
  - Fall [Unknown]
  - Acute kidney injury [Unknown]
  - Bradycardia [Recovered/Resolved]

NARRATIVE: CASE EVENT DATE: 201504
